FAERS Safety Report 6449748-8 (Version None)
Quarter: 2009Q4

REPORT INFORMATION
  Report Type: 
  Country: None (occurrence: None)
  Receive Date: 20091120
  Receipt Date: 20081114
  Transmission Date: 20100525
  Serious: Yes (Other)
  Sender: FDA-Public Use
  Company Number: US-AMGEN-QUU311680

PATIENT
  Sex: Female
  Weight: 79.5 kg

DRUGS (11)
  1. ENBREL [Suspect]
     Indication: RHEUMATOID ARTHRITIS
     Route: 058
     Dates: start: 20060524
  2. PIROXICAM [Concomitant]
     Route: 048
     Dates: start: 20050101, end: 20070601
  3. LIPITOR [Concomitant]
     Route: 048
     Dates: start: 20040101
  4. PROPRANOLOL [Concomitant]
     Route: 048
     Dates: start: 20010101
  5. NIASPAN [Concomitant]
     Route: 048
     Dates: start: 20010101
  6. LEUCOVORIN CALCIUM [Concomitant]
     Dates: start: 20061001, end: 20070601
  7. MAXZIDE [Concomitant]
  8. NEXIUM [Concomitant]
  9. OXYCODONE HCL [Concomitant]
  10. LAMISIL [Concomitant]
  11. EXCEDRIN (MIGRAINE) [Concomitant]

REACTIONS (9)
  - ARTHRALGIA [None]
  - BREAST CANCER STAGE II [None]
  - HEADACHE [None]
  - MELAENA [None]
  - METASTASES TO LYMPH NODES [None]
  - METASTATIC NEOPLASM [None]
  - OVARIAN FIBROMA [None]
  - PROCEDURAL PAIN [None]
  - SARCOIDOSIS [None]
